FAERS Safety Report 4517508-0 (Version None)
Quarter: 2004Q4

REPORT INFORMATION
  Report Type: 
  Country: None (occurrence: None)
  Receive Date: 20041130
  Receipt Date: 20041112
  Transmission Date: 20050328
  Serious: Yes (Hospitalization)
  Sender: FDA-Public Use
  Company Number: US_0411108018

PATIENT
  Age: 50 Year
  Sex: Female

DRUGS (6)
  1. DULOXETINE HYDROCHLORIDE [Suspect]
     Indication: MAJOR DEPRESSION
     Dosage: 60 MG DAY
     Dates: start: 20041103, end: 20041106
  2. SEROQUEL [Concomitant]
  3. TRAZADONE (TRAZODONE) [Concomitant]
  4. EFFEXOR [Concomitant]
  5. DILAUDID [Concomitant]
  6. ATIVAN [Concomitant]

REACTIONS (1)
  - SYNCOPE [None]
